FAERS Safety Report 18977941 (Version 1)
Quarter: 2021Q1

REPORT INFORMATION
  Report Type: Spontaneous
  Country: DE (occurrence: DE)
  Receive Date: 20210307
  Receipt Date: 20210307
  Transmission Date: 20210420
  Serious: Yes (Death, Other)
  Sender: FDA-Public Use
  Company Number: DE-TEVA-2021-DE-1886044

PATIENT
  Age: 80 Year
  Sex: Male

DRUGS (38)
  1. PYRIDOXINE HYDROCHLORIDE. [Suspect]
     Active Substance: PYRIDOXINE HYDROCHLORIDE
     Indication: VITAMIN SUPPLEMENTATION
     Dosage: THERAPY START DATE :ASKU,THERAPY END DATE :ASKU
     Route: 048
  2. ONDANSETRON [Suspect]
     Active Substance: ONDANSETRON
     Indication: NAUSEA
     Dosage: 36 MILLIGRAM DAILY; THERAPY START DATE :ASKU,THERAPY END DATE :ASKU
     Route: 042
  3. SODIUM CITRATE. [Suspect]
     Active Substance: SODIUM CITRATE
     Indication: THROMBOSIS
     Dosage: 2.5 ML, PRN,THERAPY START DATE :ASKU,THERAPY END DATE :ASKU
     Route: 065
  4. UMECLIDINIUM BROMIDE [Suspect]
     Active Substance: UMECLIDINIUM BROMIDE
     Indication: DYSPNOEA
     Dosage: 1 IU (INTERNATIONAL UNIT) DAILY; THERAPY START DATE :ASKU,THERAPY END DATE :ASKU
     Route: 048
  5. PARACETAMOL [Suspect]
     Active Substance: ACETAMINOPHEN
     Indication: ANALGESIC THERAPY
     Dosage: 650 MILLIGRAM DAILY; THERAPY START DATE :ASKU,THERAPY END DATE :ASKU
     Route: 048
  6. VILANTEROL TRIFENATATE [Suspect]
     Active Substance: VILANTEROL TRIFENATATE
     Indication: PRODUCT USED FOR UNKNOWN INDICATION
     Dosage: THERAPY START DATE :ASKU,THERAPY END DATE :ASKU
     Route: 065
  7. DOBUTAMINE [Suspect]
     Active Substance: DOBUTAMINE HYDROCHLORIDE
     Indication: CARDIOGENIC SHOCK
     Dosage: THERAPY START DATE :ASKU,THERAPY END DATE :ASKU
     Route: 042
  8. FLUTICASONE FUROATE [Suspect]
     Active Substance: FLUTICASONE FUROATE
     Indication: PRODUCT USED FOR UNKNOWN INDICATION
     Dosage: THERAPY START DATE :ASKU,THERAPY END DATE :ASKU
     Route: 065
  9. LANSOPRAZOLE. [Suspect]
     Active Substance: LANSOPRAZOLE
     Indication: ANTACID THERAPY
     Dosage: 30 MILLIGRAM DAILY; THERAPY START DATE :ASKU,THERAPY END DATE :ASKU
     Route: 048
  10. GLUCOSE [Suspect]
     Active Substance: DEXTROSE
     Indication: NUTRITIONAL SUPPLEMENTATION
     Dosage: 1.25 G, PRN,THERAPY START DATE :ASKU,THERAPY END DATE :ASKU
     Route: 042
  11. BETAMETHASONE. [Suspect]
     Active Substance: BETAMETHASONE
     Indication: SWELLING
     Dosage: UNK UNK, PRN,THERAPY START DATE :ASKU,THERAPY END DATE :ASKU
     Route: 061
  12. DALTEPARIN SODIUM [Suspect]
     Active Substance: DALTEPARIN SODIUM
     Indication: PULMONARY EMBOLISM
     Dosage: THERAPY START DATE :ASKU,THERAPY END DATE :ASKU
     Route: 065
  13. ARANESP [Suspect]
     Active Substance: DARBEPOETIN ALFA
     Indication: ANAEMIA
     Dosage: 0.714 MICROGRAM, 1/WEEK,THERAPY START DATE :ASKU,THERAPY END DATE :ASKU
     Route: 042
  14. MELATONIN [Suspect]
     Active Substance: MELATONIN
     Indication: SLEEP DISORDER THERAPY
     Dosage: 3 MILLIGRAM DAILY; THERAPY START DATE :ASKU,THERAPY END DATE :ASKU
     Route: 048
  15. SODIUM PICOSULFATE [Suspect]
     Active Substance: SODIUM PICOSULFATE
     Indication: CONSTIPATION
     Dosage: 10 MILLIGRAM, PRN,THERAPY START DATE :ASKU,THERAPY END DATE :ASKU
     Route: 054
  16. METRONIDAZOLE. [Suspect]
     Active Substance: METRONIDAZOLE
     Indication: BACTERIAL INFECTION
     Dosage: 1500 MILLIGRAM DAILY; THERAPY START DATE :ASKU,THERAPY END DATE :ASKU
     Route: 048
  17. SODIUM PHOSPHATE MONOBASIC [Suspect]
     Active Substance: SODIUM PHOSPHATE, MONOBASIC
     Indication: CONSTIPATION
     Dosage: 133 MILLILITER, PRN,THERAPY START DATE :ASKU,THERAPY END DATE :ASKU
     Route: 054
  18. CALCITRIOL. [Suspect]
     Active Substance: CALCITRIOL
     Indication: VITAMIN D
     Dosage: .25 MICROGRAM DAILY; THERAPY START DATE :ASKU,THERAPY END DATE :ASKU
     Route: 048
  19. LANTHANUM CARBONATE. [Suspect]
     Active Substance: LANTHANUM CARBONATE
     Indication: BLOOD PHOSPHORUS INCREASED
     Dosage: 500 MILLIGRAM, PRN,THERAPY START DATE :ASKU,THERAPY END DATE :ASKU
     Route: 048
  20. INSULIN DEGLUDEC [Suspect]
     Active Substance: INSULIN DEGLUDEC
     Indication: DIABETES MELLITUS
     Dosage: THERAPY START DATE :ASKU,THERAPY END DATE :ASKU
     Route: 058
  21. ASCORBIC ACID;MACROGOL 3350;POTASSIUM CHLORIDE;SODIUM ASCORBATE;SODIUM [ASCORBIC ACID\POLYETHYLENE GLYCOL 3350\POTASSIUM CHLORIDE\SODIUM ASCORBATE\SODIUM CHLORIDE\SODIUM SULFATE] [Suspect]
     Active Substance: ASCORBIC ACID\POLYETHYLENE GLYCOL 3350\POTASSIUM CHLORIDE\SODIUM ASCORBATE\SODIUM CHLORIDE\SODIUM SULFATE
     Indication: CONSTIPATION
     Dosage: 17 GRAM DAILY; THERAPY START DATE :ASKU,THERAPY END DATE :ASKU
     Route: 048
  22. WARFARIN SODIUM. [Suspect]
     Active Substance: WARFARIN SODIUM
     Indication: THROMBOSIS
     Dosage: 2 UNK, QD,THERAPY START DATE :ASKU,THERAPY END DATE :ASKU
     Route: 048
  23. HEPARIN SODIUM. [Suspect]
     Active Substance: HEPARIN SODIUM
     Indication: ANTICOAGULANT THERAPY
     Dosage: 50 MILLILITER, PRN,THERAPY START DATE :ASKU,THERAPY END DATE :ASKU
     Route: 065
  24. ONDANSETRON [Suspect]
     Active Substance: ONDANSETRON
     Indication: VOMITING
  25. INSULIN ASPART [Suspect]
     Active Substance: INSULIN ASPART
     Indication: DIABETES MELLITUS
     Dosage: THERAPY START DATE :ASKU,THERAPY END DATE :ASKU
     Route: 058
  26. HYDROMORPHONE [Suspect]
     Active Substance: HYDROMORPHONE
     Indication: ANALGESIC THERAPY
     Dosage: 24 MILLIGRAM DAILY; THERAPY START DATE :ASKU,THERAPY END DATE :ASKU
     Route: 058
  27. CEFTRIAXONE. [Suspect]
     Active Substance: CEFTRIAXONE
     Indication: BACTERIAL INFECTION
     Dosage: 2 GRAM DAILY; THERAPY START DATE :ASKU,THERAPY END DATE :ASKU
     Route: 042
  28. GABAPENTIN. [Suspect]
     Active Substance: GABAPENTIN
     Indication: NEURALGIA
     Dosage: 100 MILLIGRAM DAILY; THERAPY START DATE :ASKU,THERAPY END DATE :ASKU
     Route: 048
  29. SODIUM FERRIC GLUCONATE COMPLEX. [Suspect]
     Active Substance: SODIUM FERRIC GLUCONATE COMPLEX
     Indication: IRON DEFICIENCY
     Dosage: 4.64 MILLIGRAM, Q4WEEKS,THERAPY START DATE :ASKU,THERAPY END DATE :ASKU
     Route: 042
  30. NOREPINEPHRINE. [Suspect]
     Active Substance: NOREPINEPHRINE
     Indication: STRESS
     Dosage: THERAPY START DATE :ASKU,THERAPY END DATE :ASKU
     Route: 042
  31. SALBUTAMOL [Suspect]
     Active Substance: ALBUTEROL
     Indication: CHRONIC OBSTRUCTIVE PULMONARY DISEASE
     Dosage: PER 6 HOURS,THERAPY START DATE :ASKU,THERAPY END DATE :ASKU
     Route: 055
  32. ATROVENT [Suspect]
     Active Substance: IPRATROPIUM BROMIDE
     Indication: DYSPNOEA
     Dosage: 6 HOURS,THERAPY START DATE :ASKU,THERAPY END DATE :ASKU
     Route: 050
  33. DISTIGMINE BROMIDE [Suspect]
     Active Substance: DISTIGMINE BROMIDE
     Indication: DYSPNOEA
     Dosage: 1 IU (INTERNATIONAL UNIT) DAILY; THERAPY START DATE :ASKU,THERAPY END DATE :ASKU
     Route: 048
  34. ALLOPURINOL. [Suspect]
     Active Substance: ALLOPURINOL
     Indication: BLOOD URIC ACID INCREASED
     Dosage: 1 DOSAGE FORMS DAILY;  THERAPY START DATE :ASKU,THERAPY END DATE :ASKU
     Route: 048
  35. AMIODARONE HYDROCHLORIDE. [Suspect]
     Active Substance: AMIODARONE HYDROCHLORIDE
     Indication: VENTRICULAR FIBRILLATION
     Dosage: 150 MILLIGRAM DAILY; THERAPY START DATE :ASKU,THERAPY END DATE :ASKU
     Route: 042
  36. SIMVASTATIN. [Suspect]
     Active Substance: SIMVASTATIN
     Indication: BLOOD CHOLESTEROL INCREASED
     Dosage: 40 MILLIGRAM DAILY; THERAPY START DATE :ASKU,THERAPY END DATE :ASKU
     Route: 048
  37. PHYTONADIONE. [Suspect]
     Active Substance: PHYTONADIONE
     Indication: VITAMIN SUPPLEMENTATION
     Dosage: 5 MILLIGRAM, PRN,THERAPY START DATE :ASKU,THERAPY END DATE :ASKU
     Route: 042
  38. VASOPRESSIN. [Suspect]
     Active Substance: VASOPRESSIN
     Indication: DRUG THERAPY
     Dosage: THERAPY START DATE :ASKU,THERAPY END DATE :ASKU
     Route: 042

REACTIONS (14)
  - Sepsis [Fatal]
  - Constipation [Fatal]
  - Nausea [Fatal]
  - Stress [Fatal]
  - General physical health deterioration [Fatal]
  - Appendicolith [Fatal]
  - Vomiting [Fatal]
  - Ascites [Fatal]
  - Abdominal distension [Fatal]
  - Appendicitis [Fatal]
  - Cardiogenic shock [Fatal]
  - Abdominal pain [Fatal]
  - Multiple organ dysfunction syndrome [Fatal]
  - Hyponatraemia [Fatal]
